FAERS Safety Report 11078151 (Version 3)
Quarter: 2023Q1

REPORT INFORMATION
  Report Type: Report from Study
  Country: CA (occurrence: CA)
  Receive Date: 20150430
  Receipt Date: 20230318
  Transmission Date: 20230418
  Serious: Yes (Other)
  Sender: FDA-Public Use
  Company Number: PHHY2015CA046572

PATIENT
  Age: 52 Year
  Sex: Female

DRUGS (2)
  1. GILENYA [Suspect]
     Active Substance: FINGOLIMOD HYDROCHLORIDE
     Indication: Multiple sclerosis
     Dosage: 0.5 MG, UNK
     Route: 048
     Dates: start: 20150127, end: 20150330
  2. GILENYA [Suspect]
     Active Substance: FINGOLIMOD HYDROCHLORIDE
     Indication: Secondary progressive multiple sclerosis

REACTIONS (4)
  - Fallopian tube cyst [Unknown]
  - Expanded disability status scale score increased [Unknown]
  - Urinary tract infection [Unknown]
  - Influenza [Unknown]

NARRATIVE: CASE EVENT DATE: 20150201
